FAERS Safety Report 4322976-3 (Version None)
Quarter: 2004Q1

REPORT INFORMATION
  Report Type: 
  Country: None (occurrence: None)
  Receive Date: 20040322
  Receipt Date: 20040304
  Transmission Date: 20041129
  Serious: Yes (Other)
  Sender: FDA-Public Use
  Company Number: 701731

PATIENT
  Age: 54 Year
  Sex: Female

DRUGS (1)
  1. AMEVIVE [Suspect]
     Indication: ECZEMA
     Dosage: 15 MG QW IM
     Route: 030
     Dates: start: 20031103, end: 20040205

REACTIONS (3)
  - BLINDNESS TRANSIENT [None]
  - CEREBROVASCULAR ACCIDENT [None]
  - CEREBROVASCULAR STENOSIS [None]
